FAERS Safety Report 17584930 (Version 5)
Quarter: 2020Q4

REPORT INFORMATION
  Report Type: Spontaneous
  Country: US (occurrence: US)
  Receive Date: 20200326
  Receipt Date: 20201104
  Transmission Date: 20210113
  Serious: No
  Sender: FDA-Public Use
  Company Number: US-VERTEX PHARMACEUTICALS-2020-006616

PATIENT
  Age: 42 Year
  Sex: Male

DRUGS (1)
  1. KALYDECO [Suspect]
     Active Substance: IVACAFTOR
     Indication: CYSTIC FIBROSIS
     Dosage: 150 MG
     Route: 048
     Dates: start: 20171130

REACTIONS (7)
  - Nasopharyngitis [Recovered/Resolved]
  - Chills [Recovered/Resolved]
  - Influenza like illness [Unknown]
  - Headache [Recovered/Resolved]
  - Product quality issue [Unknown]
  - Hyperhidrosis [Recovered/Resolved]
  - Feeling abnormal [Unknown]

NARRATIVE: CASE EVENT DATE: 202001
